FAERS Safety Report 20820821 (Version 12)
Quarter: 2023Q4

REPORT INFORMATION
  Report Type: Report from Study
  Country: US (occurrence: US)
  Receive Date: 20220512
  Receipt Date: 20231005
  Transmission Date: 20240110
  Serious: Yes (Other)
  Sender: FDA-Public Use
  Company Number: US-NOVARTISTESTPH-NVSC2022US108785

PATIENT
  Age: 24 Year
  Sex: Female

DRUGS (1)
  1. KESIMPTA [Suspect]
     Active Substance: OFATUMUMAB
     Indication: Relapsing multiple sclerosis
     Dosage: 20 MG, QMO
     Route: 058
     Dates: start: 20220427

REACTIONS (15)
  - Multiple sclerosis relapse [Unknown]
  - Visual impairment [Unknown]
  - Fatigue [Unknown]
  - Headache [Unknown]
  - Irritability [Unknown]
  - Blepharospasm [Unknown]
  - Acne [Unknown]
  - Mysophobia [Unknown]
  - Heat exhaustion [Unknown]
  - Pain [Recovering/Resolving]
  - Hypoaesthesia [Unknown]
  - Malaise [Unknown]
  - Memory impairment [Unknown]
  - Chills [Recovering/Resolving]
  - Pyrexia [Recovering/Resolving]

NARRATIVE: CASE EVENT DATE: 20220427
